FAERS Safety Report 4628382-6 (Version None)
Quarter: 2005Q2

REPORT INFORMATION
  Report Type: 
  Country: None (occurrence: None)
  Receive Date: 20050406
  Receipt Date: 20050401
  Transmission Date: 20051028
  Serious: Yes (Death)
  Sender: FDA-Public Use
  Company Number: PHBS2005ES04550

PATIENT
  Age: 70 Year
  Sex: Male

DRUGS (2)
  1. SINTROM [Concomitant]
  2. DIGARIL PROLIB [Suspect]
     Dosage: UNK, UNK
     Route: 048

REACTIONS (1)
  - DEATH [None]
